FAERS Safety Report 8221086-2 (Version None)
Quarter: 2012Q1

REPORT INFORMATION
  Report Type: 
  Country: None (occurrence: None)
  Receive Date: 20120320
  Receipt Date: 20120307
  Transmission Date: 20120608
  Serious: Yes (Hospitalization, Other)
  Sender: FDA-Public Use
  Company Number: US-ELI_LILLY_AND_COMPANY-US201103007160

PATIENT
  Sex: Female
  Weight: 56.2 kg

DRUGS (7)
  1. PREDNISONE [Concomitant]
     Dosage: 3 MG, UNK
  2. COUMADIN [Concomitant]
  3. NEXIUM [Concomitant]
     Dosage: 40 MG, UNK
  4. FORTEO [Suspect]
     Indication: OSTEOPOROSIS
     Dosage: 20 UG, QD
     Route: 065
     Dates: start: 20101117
  5. FORTEO [Suspect]
     Dosage: 20 UG, QD
     Route: 065
  6. FEMARA [Concomitant]
  7. METOPROLOL SUCCINATE [Concomitant]

REACTIONS (8)
  - BURSITIS [None]
  - CEREBRAL HAEMORRHAGE [None]
  - FOOT FRACTURE [None]
  - FALL [None]
  - ABDOMINAL DISCOMFORT [None]
  - MUSCULOSKELETAL DISCOMFORT [None]
  - NAUSEA [None]
  - HEAD INJURY [None]
